FAERS Safety Report 25035686 (Version 2)
Quarter: 2025Q1

REPORT INFORMATION
  Report Type: Spontaneous
  Country: US (occurrence: US)
  Receive Date: 20250304
  Receipt Date: 20250311
  Transmission Date: 20250409
  Serious: Yes (Life-Threatening, Hospitalization, Other)
  Sender: AUROBINDO
  Company Number: US-MLMSERVICE-20250217-PI413163-00203-1

PATIENT
  Age: 6 Decade
  Sex: Male

DRUGS (6)
  1. LISINOPRIL [Suspect]
     Active Substance: LISINOPRIL
     Indication: Blood pressure management
     Dosage: 20 MILLIGRAM, ONCE A DAY
     Route: 065
  2. TIZANIDINE HYDROCHLORIDE [Suspect]
     Active Substance: TIZANIDINE HYDROCHLORIDE
     Indication: Back pain
     Dosage: 8 MILLIGRAM, 3 TIMES A DAY
     Route: 065
  3. TIZANIDINE HYDROCHLORIDE [Suspect]
     Active Substance: TIZANIDINE HYDROCHLORIDE
     Indication: Muscle spasms
  4. AZITHROMYCIN [Suspect]
     Active Substance: AZITHROMYCIN
     Indication: Pneumonia
     Route: 065
  5. METOPROLOL [Concomitant]
     Active Substance: METOPROLOL
     Indication: Blood pressure management
     Dosage: 25 MILLIGRAM, TWO TIMES A DAY
     Route: 065
  6. DOXYCYCLINE [Concomitant]
     Active Substance: DOXYCYCLINE
     Indication: Pneumonia
     Route: 065

REACTIONS (3)
  - Electrocardiogram QT prolonged [Unknown]
  - Hypotension [Recovered/Resolved]
  - Drug interaction [Recovered/Resolved]
